FAERS Safety Report 17283819 (Version 7)
Quarter: 2020Q3

REPORT INFORMATION
  Report Type: Report from Study
  Country: US (occurrence: US)
  Receive Date: 20200117
  Receipt Date: 20200828
  Transmission Date: 20201102
  Serious: Yes (Death, Life-Threatening, Hospitalization, Other)
  Sender: FDA-Public Use
  Company Number: US-ASTELLAS-2019US013598

PATIENT
  Age: 75 Year
  Sex: Male
  Weight: 107 kg

DRUGS (8)
  1. LIDOCAINE?EPINEPHRINE [Concomitant]
     Active Substance: EPINEPHRINE\LIDOCAINE
     Indication: PRODUCT USED FOR UNKNOWN INDICATION
     Route: 065
  2. MAGNESIUM OXIDE. [Concomitant]
     Active Substance: MAGNESIUM OXIDE
     Indication: PRODUCT USED FOR UNKNOWN INDICATION
     Route: 065
  3. TRIAMCINOLONE [Concomitant]
     Active Substance: TRIAMCINOLONE
     Indication: PRODUCT USED FOR UNKNOWN INDICATION
     Dosage: UNK UNK, TWICE DAILY
     Route: 065
  4. ASG?22CE [Suspect]
     Active Substance: ENFORTUMAB VEDOTIN
     Dosage: 1.25 MG/KG, CYCLIC (C1, D8)
     Route: 042
     Dates: start: 20190318
  5. HEPARIN [Concomitant]
     Active Substance: HEPARIN SODIUM
     Indication: PRODUCT USED FOR UNKNOWN INDICATION
     Route: 065
  6. ASG?22CE [Suspect]
     Active Substance: ENFORTUMAB VEDOTIN
     Indication: TRANSITIONAL CELL CARCINOMA METASTATIC
     Dosage: 1.25 MG/KG, CYCLIC (1.25 MG/KG, CYCLIC (C1, D1)
     Route: 042
     Dates: start: 20190311
  7. SODIUM CITRATE/CITRIC ACID [Concomitant]
     Active Substance: CITRIC ACID MONOHYDRATE\SODIUM CITRATE
     Indication: PRODUCT USED FOR UNKNOWN INDICATION
     Route: 065
  8. SENNA [SENNOSIDE A+B] [Concomitant]
     Active Substance: SENNOSIDES A AND B
     Indication: PRODUCT USED FOR UNKNOWN INDICATION
     Dosage: 8.6 MG, AT BEDTIME (HS)
     Route: 065

REACTIONS (15)
  - Acute kidney injury [Not Recovered/Not Resolved]
  - Anaemia [Not Recovered/Not Resolved]
  - Hepatic failure [Not Recovered/Not Resolved]
  - Respiratory failure [Recovering/Resolving]
  - Diarrhoea [Not Recovered/Not Resolved]
  - Atrial fibrillation [Recovered/Resolved]
  - Rash maculo-papular [Not Recovered/Not Resolved]
  - Sepsis [Not Recovered/Not Resolved]
  - Encephalopathy [Not Recovered/Not Resolved]
  - Fungaemia [Fatal]
  - Blepharitis [Recovering/Resolving]
  - Respiratory failure [Recovered/Resolved]
  - Hypersensitivity [Not Recovered/Not Resolved]
  - Platelet count decreased [Recovering/Resolving]
  - Aspiration [Recovered/Resolved with Sequelae]

NARRATIVE: CASE EVENT DATE: 20190322
